FAERS Safety Report 5259819-X (Version None)
Quarter: 2007Q1

REPORT INFORMATION
  Report Type: 
  Country: None (occurrence: None)
  Receive Date: 20070309
  Receipt Date: 20070226
  Transmission Date: 20070707
  Serious: Yes (Other)
  Sender: FDA-Public Use
  Company Number: GBWYE792327FEB07

PATIENT
  Sex: Male

DRUGS (1)
  1. ENBREL [Suspect]
     Indication: RHEUMATOID ARTHRITIS
     Dates: end: 20061103

REACTIONS (3)
  - PNEUMONIA HAEMOPHILUS [None]
  - PNEUMONIA STAPHYLOCOCCAL [None]
  - PULMONARY FIBROSIS [None]
